FAERS Safety Report 5100729-6 (Version None)
Quarter: 2006Q3

REPORT INFORMATION
  Report Type: 
  Country: None (occurrence: None)
  Receive Date: 20060906
  Receipt Date: 20060824
  Transmission Date: 20061208
  Serious: Yes (Other)
  Sender: FDA-Public Use
  Company Number: US-SHR-03-016392

PATIENT
  Age: 41 Year
  Sex: Female
  Weight: 51.2 kg

DRUGS (3)
  1. CLIMARA [Suspect]
     Indication: MENOPAUSAL SYMPTOMS
     Dosage: 0.1 MG/D, CONT, TRANSDERMAL
     Route: 062
     Dates: start: 20000101, end: 20010101
  2. PREMARIN [Suspect]
     Indication: MENOPAUSAL SYMPTOMS
     Dosage: 1X/DAY, ORAL
     Route: 048
     Dates: start: 19940101, end: 19980101
  3. PREMARIN [Suspect]
     Indication: MENOPAUSAL SYMPTOMS
     Dosage: 1X/DAY, ORAL
     Route: 048
     Dates: start: 19990101, end: 20010101

REACTIONS (2)
  - BREAST CANCER FEMALE [None]
  - THROMBOSIS [None]
